FAERS Safety Report 6877153-9 (Version None)
Quarter: 2010Q3

REPORT INFORMATION
  Report Type: 
  Country: None (occurrence: None)
  Receive Date: 20100727
  Receipt Date: 20010911
  Transmission Date: 20110219
  Serious: Yes (Death)
  Sender: FDA-Public Use
  Company Number: CA-ROCHE-716605

PATIENT
  Sex: Male
  Weight: 89.3 kg

DRUGS (6)
  1. CAPECITABINE [Suspect]
     Indication: COLORECTAL CANCER
     Dosage: FORM: 2000 MG/M2
     Route: 048
     Dates: start: 20010821, end: 20010904
  2. COUMADIN [Concomitant]
     Dosage: 5 MG PO OD X 3 DAYS
     Dates: start: 20010821
  3. COUMADIN [Concomitant]
     Dosage: 2.5 MG PO. OD X 3 DAYS.
     Dates: start: 20010828, end: 20010831
  4. ACETAMINOPHEN [Concomitant]
     Dosage: TDD: 1-2 TABS PRN
     Dates: start: 20010828, end: 20010910
  5. MORPHINE [Concomitant]
     Dosage: TDD: 1-5 MG, SL
     Dates: start: 20010910, end: 20010911
  6. FRAGMIN [Concomitant]
     Dosage: TDD: 17000 UG
     Dates: start: 20010821

REACTIONS (1)
  - SMALL INTESTINAL OBSTRUCTION [None]
